FAERS Safety Report 5581145-X (Version None)
Quarter: 2007Q4

REPORT INFORMATION
  Report Type: 
  Country: None (occurrence: None)
  Receive Date: 20071130
  Receipt Date: 20070910
  Transmission Date: 20080405
  Serious: No
  Sender: FDA-Public Use
  Company Number: US200707003992

PATIENT
  Age: 69 Year
  Sex: Female

DRUGS (17)
  1. BYETTA [Suspect]
     Indication: TYPE 2 DIABETES MELLITUS
     Dosage: 5 UG, 2/D, SUBCUTANEOUS
     Route: 058
     Dates: start: 20070601
  2. CYMBALTA [Concomitant]
  3. PERCOCET [Concomitant]
  4. NORCO [Concomitant]
  5. PARAFON FORTE [Concomitant]
  6. ALDACTONE [Concomitant]
  7. LASIX [Concomitant]
  8. MONOPRIL [Concomitant]
  9. XANAX [Concomitant]
  10. PLAQUENIL [Concomitant]
  11. AVANDIA [Concomitant]
  12. ARICEPT [Concomitant]
  13. AMARYL [Concomitant]
  14. ARAVA [Concomitant]
  15. WELLBUTRIN [Concomitant]
  16. NEURONTIN [Concomitant]
  17. MOBIC [Concomitant]

REACTIONS (3)
  - BLOOD GLUCOSE INCREASED [None]
  - DEVICE FAILURE [None]
  - STRESS [None]
